FAERS Safety Report 4577992-3 (Version None)
Quarter: 2005Q1

REPORT INFORMATION
  Report Type: 
  Country: None (occurrence: None)
  Receive Date: 20050209
  Receipt Date: 20050128
  Transmission Date: 20050727
  Serious: Yes (Death, Hospitalization, Other)
  Sender: FDA-Public Use
  Company Number: PL-2004-034462

PATIENT
  Age: 77 Year
  Sex: Female

DRUGS (15)
  1. FLUDARA [Suspect]
     Indication: CHRONIC LYMPHOCYTIC LEUKAEMIA
     Dosage: 20 MG DAYS 5, 6, 7 Q28D INTRAVENOUS
     Route: 042
     Dates: start: 20030204, end: 20030326
  2. CYCLOPHOSPHAMIDE [Suspect]
     Indication: CHRONIC LYMPHOCYTIC LEUKAEMIA
     Dosage: 200 MG DAYS 5,6, 7, Q28 INTRAVENOUS
     Route: 042
     Dates: start: 20030204, end: 20030326
  3. GENASENSE [Suspect]
     Indication: CHRONIC LYMPHOCYTIC LEUKAEMIA
     Dosage: 177 MG DAYS 1-7 Q28D INTRAVENOUS
     Route: 042
     Dates: start: 20030131, end: 20030326
  4. FUROSEMIDE [Concomitant]
  5. METOPROLOL TARTRATE [Concomitant]
  6. CAPTOPRIL [Concomitant]
  7. AMOXICILLIN [Concomitant]
  8. EPOETIN ALF (EPOETIN ALFA) [Concomitant]
  9. FILTRASTIM (FILGRASTIM) [Concomitant]
  10. ALLOPURINOL [Concomitant]
  11. NIFUROXAZIDE(NIFUROXAZIDE) [Concomitant]
  12. LOPERAMIDE HCL [Concomitant]
  13. TRAMADOL HCL [Concomitant]
  14. POTASSIUM (POTASSIUM) [Concomitant]
  15. NORMAL SALINE [Concomitant]

REACTIONS (16)
  - ATELECTASIS [None]
  - BLOOD PRESSURE DECREASED [None]
  - BRONCHOPULMONARY ASPERGILLOSIS [None]
  - CANDIDIASIS [None]
  - CEREBRAL THROMBOSIS [None]
  - CHRONIC LYMPHOCYTIC LEUKAEMIA [None]
  - CLOSTRIDIUM COLITIS [None]
  - CORONARY ARTERY ATHEROSCLEROSIS [None]
  - DEHYDRATION [None]
  - GENERAL PHYSICAL HEALTH DETERIORATION [None]
  - LYMPHADENOPATHY [None]
  - MALIGNANT NEOPLASM PROGRESSION [None]
  - PANCYTOPENIA [None]
  - PLEURAL EFFUSION [None]
  - PULMONARY EMBOLISM [None]
  - PULMONARY OEDEMA [None]
